FAERS Safety Report 8186440-6 (Version None)
Quarter: 2012Q1

REPORT INFORMATION
  Report Type: 
  Country: None (occurrence: None)
  Receive Date: 20120301
  Receipt Date: 20120222
  Transmission Date: 20120608
  Serious: Yes (Hospitalization)
  Sender: FDA-Public Use
  Company Number: USA/UKI/12/0023180

PATIENT
  Age: 46 Year
  Sex: Male

DRUGS (1)
  1. OMEPRAZOLE [Suspect]
     Indication: BARRETT'S OESOPHAGUS
     Dosage: 40;20MG, 1 D

REACTIONS (6)
  - DIARRHOEA [None]
  - VOMITING [None]
  - ELECTROCARDIOGRAM QT PROLONGED [None]
  - HYPOMAGNESAEMIA [None]
  - BLOOD PARATHYROID HORMONE DECREASED [None]
  - HYPOCALCAEMIA [None]
